FAERS Safety Report 8995123 (Version 1)
Quarter: 2012Q4

REPORT INFORMATION
  Report Type: Spontaneous
  Country: US (occurrence: None)
  Receive Date: 20121228
  Receipt Date: 20121228
  Transmission Date: 20130627
  Serious: Yes (Hospitalization)
  Sender: FDA-Public Use
  Company Number: None

PATIENT
  Age: 61 Year
  Sex: Male
  Weight: 55.5 kg

DRUGS (1)
  1. PHENYTOIN [Suspect]
     Indication: SEIZURE
     Route: 048
     Dates: start: 20121020

REACTIONS (5)
  - Convulsion [None]
  - Fall [None]
  - Nystagmus [None]
  - Ataxia [None]
  - Anticonvulsant drug level decreased [None]
